FAERS Safety Report 14074138 (Version 1)
Quarter: 2017Q4

REPORT INFORMATION
  Report Type: Spontaneous
  Country: FR (occurrence: FR)
  Receive Date: 20171011
  Receipt Date: 20171011
  Transmission Date: 20180321
  Serious: Yes (Death, Hospitalization)
  Sender: FDA-Public Use
  Company Number: FR-ASTRAZENECA-2017SF03300

PATIENT
  Age: 26370 Day
  Sex: Male

DRUGS (12)
  1. TAZOCILLINE [Suspect]
     Active Substance: PIPERACILLIN SODIUM\TAZOBACTAM SODIUM
     Indication: INFECTION
     Route: 048
     Dates: start: 20170825, end: 20170904
  2. INEXIUM [Suspect]
     Active Substance: ESOMEPRAZOLE
     Indication: GASTROOESOPHAGEAL REFLUX DISEASE
     Route: 048
     Dates: start: 20170825, end: 20170905
  3. CORDARONE [Concomitant]
     Active Substance: AMIODARONE HYDROCHLORIDE
  4. LANTUS [Concomitant]
     Active Substance: INSULIN GLARGINE
  5. AVODART [Concomitant]
     Active Substance: DUTASTERIDE
  6. FORLAX [Concomitant]
     Active Substance: POLYETHYLENE GLYCOL 4000
  7. DIFFU K [Concomitant]
     Active Substance: POTASSIUM CHLORIDE
  8. DAFALGAN [Concomitant]
     Active Substance: ACETAMINOPHEN
  9. LASILIX [Concomitant]
     Active Substance: FUROSEMIDE
  10. COUMADINE [Concomitant]
     Active Substance: WARFARIN SODIUM
  11. RAMIPRIL. [Concomitant]
     Active Substance: RAMIPRIL
  12. VOGALENE [Concomitant]
     Active Substance: METOPIMAZINE

REACTIONS (1)
  - Acute generalised exanthematous pustulosis [Recovered/Resolved]

NARRATIVE: CASE EVENT DATE: 20170901
